FAERS Safety Report 13892054 (Version 1)
Quarter: 2017Q3

REPORT INFORMATION
  Report Type: Report from Study
  Country: CA (occurrence: CA)
  Receive Date: 20170822
  Receipt Date: 20170822
  Transmission Date: 20171127
  Serious: Yes (Death, Life-Threatening, Disabling)
  Sender: FDA-Public Use
  Company Number: CA-IMPAX LABORATORIES, INC-2014AMD00112

PATIENT
  Age: 67 Year
  Sex: Male
  Weight: 80 kg

DRUGS (2)
  1. ALBENZA [Suspect]
     Active Substance: ALBENDAZOLE
     Indication: STRONGYLOIDIASIS
     Dosage: 800 MG, BID
     Route: 048
     Dates: start: 20140822
  2. IVERMECTIN. [Suspect]
     Active Substance: IVERMECTIN
     Indication: STRONGYLOIDIASIS
     Dosage: 15 MG, QD
     Route: 048
     Dates: start: 20140822

REACTIONS (3)
  - Sepsis [Fatal]
  - Disease progression [Fatal]
  - Strongyloidiasis [Fatal]

NARRATIVE: CASE EVENT DATE: 201408
